FAERS Safety Report 9820425 (Version 1)
Quarter: 2013Q4

REPORT INFORMATION
  Report Type: Spontaneous
  Country: US (occurrence: None)
  Receive Date: 20131223
  Receipt Date: 20131223
  Transmission Date: 20140711
  Serious: No
  Sender: FDA-Public Use
  Company Number: 220605

PATIENT
  Age: 74 Year
  Sex: Female

DRUGS (2)
  1. PICATO (0.015%, GEL) [Suspect]
     Indication: ACTINIC KERATOSIS
     Dosage: DERMAL
  2. TRETINOIN (TRETINOIN) (CREAM) [Concomitant]

REACTIONS (4)
  - Application site erosion [None]
  - Application site bruise [None]
  - Incorrect drug administration duration [None]
  - Drug administered at inappropriate site [None]
